FAERS Safety Report 5420664-3 (Version None)
Quarter: 2007Q3

REPORT INFORMATION
  Report Type: 
  Country: None (occurrence: None)
  Receive Date: 20070821
  Receipt Date: 20070809
  Transmission Date: 20080115
  Serious: Yes (Other)
  Sender: FDA-Public Use
  Company Number: HQWYE521610AUG07

PATIENT
  Age: 59 Year
  Sex: Female

DRUGS (2)
  1. EFFEXOR XR [Suspect]
     Indication: ANXIETY
     Dosage: UNKNOWN
     Route: 065
  2. EFFEXOR XR [Suspect]
     Indication: DEPRESSION

REACTIONS (1)
  - SELF-INJURIOUS IDEATION [None]
